FAERS Safety Report 10530773 (Version 2)
Quarter: 2014Q4

REPORT INFORMATION
  Report Type: Other
  Country: GB (occurrence: GB)
  Receive Date: 20141021
  Receipt Date: 20141125
  Transmission Date: 20150528
  Serious: Yes (Life-Threatening, Other)
  Sender: FDA-Public Use
  Company Number: GB-TAKEDA-2014TEU009061

PATIENT
  Age: 59 Year
  Sex: Female
  Weight: 79 kg

DRUGS (9)
  1. PIOGLITAZONE [Suspect]
     Active Substance: PIOGLITAZONE
     Indication: PRODUCT USED FOR UNKNOWN INDICATION
     Dosage: UNK
     Route: 048
     Dates: start: 20110324, end: 201107
  2. FORXIGA [Suspect]
     Active Substance: DAPAGLIFLOZIN
     Indication: DIABETES MELLITUS
     Dosage: 10 MG, UNK
     Route: 048
     Dates: start: 201408
  3. MEBEVERINE [Concomitant]
     Active Substance: MEBEVERINE
  4. VICTOZA [Suspect]
     Active Substance: LIRAGLUTIDE
     Indication: DIABETES MELLITUS
     Dosage: 6 MG, UNK
     Route: 058
     Dates: start: 201210, end: 201312
  5. CITALOPRAM [Concomitant]
     Active Substance: CITALOPRAM HYDROBROMIDE
  6. PERINDOPRIL [Concomitant]
     Active Substance: PERINDOPRIL
  7. FERROUS FUMARATE [Concomitant]
     Active Substance: FERROUS FUMARATE
  8. HUMULIN I [Concomitant]
  9. ATORVASTATIN [Concomitant]
     Active Substance: ATORVASTATIN

REACTIONS (1)
  - Ovarian cancer [Not Recovered/Not Resolved]

NARRATIVE: CASE EVENT DATE: 20140930
